FAERS Safety Report 24900090 (Version 4)
Quarter: 2025Q3

REPORT INFORMATION
  Report Type: Report from Study
  Country: TH (occurrence: TH)
  Receive Date: 20250129
  Receipt Date: 20250922
  Transmission Date: 20251021
  Serious: Yes (Death, Hospitalization)
  Sender: DAIICHI
  Company Number: TH-DSJP-DS-2025-120872-TH

PATIENT
  Age: 61 Year
  Sex: Female

DRUGS (4)
  1. ENHERTU [Suspect]
     Active Substance: FAM-TRASTUZUMAB DERUXTECAN-NXKI
     Indication: HER2 positive breast cancer
     Route: 042
     Dates: start: 20241203
  2. ENHERTU [Suspect]
     Active Substance: FAM-TRASTUZUMAB DERUXTECAN-NXKI
     Indication: HER2 low breast cancer
     Route: 042
     Dates: start: 20250317, end: 20250317
  3. ENHERTU [Suspect]
     Active Substance: FAM-TRASTUZUMAB DERUXTECAN-NXKI
     Indication: Breast cancer metastatic
     Route: 042
  4. MORPHINE [Concomitant]
     Active Substance: MORPHINE
     Indication: Product used for unknown indication
     Route: 065

REACTIONS (22)
  - Dyspnoea [Fatal]
  - Breast cancer stage IV [Fatal]
  - Respiratory failure [Fatal]
  - Constipation [Not Recovered/Not Resolved]
  - Dyspepsia [Not Recovered/Not Resolved]
  - Feeding disorder [Not Recovered/Not Resolved]
  - Hospitalisation [Not Recovered/Not Resolved]
  - Vision blurred [Recovering/Resolving]
  - Intracranial pressure increased [Recovering/Resolving]
  - Urinary tract infection [Unknown]
  - Medical device site infection [Unknown]
  - Fungal infection [Unknown]
  - Pneumonia aspiration [Unknown]
  - Urinary tract infection [Not Recovered/Not Resolved]
  - Pyrexia [Unknown]
  - Infection [Unknown]
  - Decubitus ulcer [Not Recovered/Not Resolved]
  - Sepsis [Not Recovered/Not Resolved]
  - Decreased appetite [Not Recovered/Not Resolved]
  - Pyrexia [Not Recovered/Not Resolved]
  - Urinary retention [Unknown]
  - Pulmonary oedema [Recovering/Resolving]

NARRATIVE: CASE EVENT DATE: 20241223
